FAERS Safety Report 7090388-8 (Version None)
Quarter: 2010Q4

REPORT INFORMATION
  Report Type: 
  Country: None (occurrence: None)
  Receive Date: 20101109
  Receipt Date: 20101103
  Transmission Date: 20110411
  Serious: Yes (Other)
  Sender: FDA-Public Use
  Company Number: PHHY2010CA63922

PATIENT
  Sex: Female

DRUGS (5)
  1. ACLASTA [Suspect]
     Indication: OSTEOPENIA
     Dosage: 5MG/100ML
     Route: 042
     Dates: start: 20090716
  2. ACLASTA [Suspect]
     Dosage: 5MG/100ML
     Route: 042
     Dates: start: 20100820
  3. ARICEPT [Concomitant]
     Dosage: 5 MG OD
  4. DETROL [Concomitant]
     Dosage: 2MG, ONE TAB OD
  5. SYNTHROID [Concomitant]
     Dosage: 88 MCG OD

REACTIONS (5)
  - DYSPNOEA [None]
  - FATIGUE [None]
  - INCOHERENT [None]
  - LOSS OF CONSCIOUSNESS [None]
  - UNRESPONSIVE TO STIMULI [None]
